FAERS Safety Report 5311513-2 (Version None)
Quarter: 2007Q2

REPORT INFORMATION
  Report Type: 
  Country: None (occurrence: None)
  Receive Date: 20070430
  Receipt Date: 20070424
  Transmission Date: 20071010
  Serious: Yes (Life-Threatening, Hospitalization)
  Sender: FDA-Public Use
  Company Number: NL-GLAXOSMITHKLINE-B0452588A

PATIENT
  Age: 2 Week
  Sex: Female
  Weight: 3.4 kg

DRUGS (2)
  1. LAMIVUDINE + ZIDOVUDINE [Suspect]
     Indication: HIV INFECTION
     Dates: start: 20060724
  2. VIRACEPT [Concomitant]
     Indication: HIV INFECTION
     Dates: start: 20060724

REACTIONS (4)
  - DRUG EXPOSURE DURING PREGNANCY [None]
  - NECROTISING COLITIS [None]
  - TRISOMY 21 [None]
  - VENTRICULAR SEPTAL DEFECT [None]
